FAERS Safety Report 13184013 (Version 1)
Quarter: 2017Q1

REPORT INFORMATION
  Report Type: Spontaneous
  Country: US (occurrence: US)
  Receive Date: 20170203
  Receipt Date: 20170203
  Transmission Date: 20170428
  Serious: No
  Sender: FDA-Public Use
  Company Number: US-009507513-1702USA001580

PATIENT
  Age: 66 Year
  Sex: Male

DRUGS (2)
  1. REMERON [Suspect]
     Active Substance: MIRTAZAPINE
     Indication: DEPRESSION
  2. REMERON [Suspect]
     Active Substance: MIRTAZAPINE
     Indication: ANXIETY
     Dosage: UNK
     Route: 048

REACTIONS (1)
  - Drug ineffective [Unknown]
